FAERS Safety Report 6987839-3 (Version None)
Quarter: 2010Q3

REPORT INFORMATION
  Report Type: 
  Country: None (occurrence: None)
  Receive Date: 20100914
  Receipt Date: 20100903
  Transmission Date: 20110219
  Serious: Yes (Life-Threatening)
  Sender: FDA-Public Use
  Company Number: 105623

PATIENT
  Age: 50 Year
  Sex: Male

DRUGS (2)
  1. CISPLATIN [Suspect]
     Indication: SMALL CELL LUNG CANCER STAGE UNSPECIFIED
     Dosage: 60MG/M2 ON DAY 1/ EVERY THREE WEEKS/ IV
     Route: 042
  2. ETOPOSIDE [Suspect]
     Indication: SMALL CELL LUNG CANCER STAGE UNSPECIFIED
     Dosage: 100MG/M2 ON DAYS 1-3/ EVERY THREE WEEKS/ I

REACTIONS (3)
  - AORTIC THROMBOSIS [None]
  - BLOOD FIBRINOGEN INCREASED [None]
  - PLATELET COUNT INCREASED [None]
